FAERS Safety Report 21526413 (Version 2)
Quarter: 2024Q4

REPORT INFORMATION
  Report Type: Spontaneous
  Country: US (occurrence: US)
  Receive Date: 20221031
  Receipt Date: 20241106
  Transmission Date: 20250115
  Serious: No
  Sender: UCB
  Company Number: US-UCBSA-2022025030

PATIENT
  Age: 15 Month

DRUGS (1)
  1. VIMPAT [Suspect]
     Active Substance: LACOSAMIDE
     Indication: Seizure
     Dosage: 10 MILLIGRAM PER MILLILITRE, UNK
     Route: 048

REACTIONS (1)
  - Medication error [Unknown]
